FAERS Safety Report 7972794-X (Version None)
Quarter: 2011Q4

REPORT INFORMATION
  Report Type: 
  Country: None (occurrence: None)
  Receive Date: 20111213
  Receipt Date: 20111208
  Transmission Date: 20120403
  Serious: No
  Sender: FDA-Public Use
  Company Number: US-PFIZER INC-2011299861

PATIENT
  Sex: Female

DRUGS (1)
  1. SUTENT [Suspect]
     Indication: MALIGNANT NEOPLASM OF ISLETS OF LANGERHANS
     Dosage: 25 MG, UNK
     Dates: start: 20111019

REACTIONS (7)
  - DIARRHOEA [None]
  - LIVER DISORDER [None]
  - MALAISE [None]
  - DIZZINESS [None]
  - NAUSEA [None]
  - DEHYDRATION [None]
  - ASTHENIA [None]
